FAERS Safety Report 4319013-3 (Version None)
Quarter: 2004Q1

REPORT INFORMATION
  Report Type: 
  Country: None (occurrence: None)
  Receive Date: 20040316
  Receipt Date: 20040302
  Transmission Date: 20041129
  Serious: Yes (Hospitalization)
  Sender: FDA-Public Use
  Company Number: CA_040306703

PATIENT
  Age: 80 Year
  Sex: Female

DRUGS (2)
  1. ZYPREXA [Suspect]
     Dosage: 2.5 MG
  2. LIPITOR (ATORAVSTATIN) [Concomitant]

REACTIONS (2)
  - ENZYME ABNORMALITY [None]
  - RHABDOMYOLYSIS [None]
